FAERS Safety Report 24562460 (Version 3)
Quarter: 2025Q3

REPORT INFORMATION
  Report Type: Report from Study
  Country: US (occurrence: US)
  Receive Date: 20241029
  Receipt Date: 20250718
  Transmission Date: 20251020
  Serious: Yes (Hospitalization)
  Sender: SUNOVION
  Company Number: US-SMPA-2024SPA004485

PATIENT

DRUGS (3)
  1. ORGOVYX [Suspect]
     Active Substance: RELUGOLIX
     Indication: Prostate cancer
     Dosage: 120 MG, QD
     Route: 048
     Dates: start: 20240208
  2. PREDNISONE [Concomitant]
     Active Substance: PREDNISONE
     Route: 065
  3. ABIRATERONE [Concomitant]
     Active Substance: ABIRATERONE
     Route: 065

REACTIONS (2)
  - Fall [Unknown]
  - Blood pressure increased [Unknown]
